FAERS Safety Report 4415837-2 (Version None)
Quarter: 2004Q3

REPORT INFORMATION
  Report Type: 
  Country: None (occurrence: None)
  Receive Date: 20040730
  Receipt Date: 20040715
  Transmission Date: 20050211
  Serious: Yes (Hospitalization)
  Sender: FDA-Public Use
  Company Number: 207995

PATIENT
  Age: 77 Year
  Sex: Female
  Weight: 53 kg

DRUGS (5)
  1. HERCEPTIN [Suspect]
     Indication: BREAST CANCER
     Dosage: 4 MG/KG, 1/WEEK, INTRAVENOUS
     Route: 042
     Dates: start: 20040702
  2. FENTANYL CITRATE [Concomitant]
  3. DECADRON [Concomitant]
  4. ATARAX [Concomitant]
  5. SOLU-MEDROL (METHYLPREDNSIOLONE SODIUM SUCCINATE) [Concomitant]

REACTIONS (8)
  - BLOOD ALKALINE PHOSPHATASE INCREASED [None]
  - BLOOD BILIRUBIN INCREASED [None]
  - INFUSION RELATED REACTION [None]
  - LIVER DISORDER [None]
  - MUSCULOSKELETAL STIFFNESS [None]
  - NAUSEA [None]
  - STRESS SYMPTOMS [None]
  - VOMITING [None]
